FAERS Safety Report 6056093-1 (Version None)
Quarter: 2009Q1

REPORT INFORMATION
  Report Type: 
  Country: None (occurrence: None)
  Receive Date: 20090128
  Receipt Date: 20090126
  Transmission Date: 20090719
  Serious: Yes (Hospitalization, Other)
  Sender: FDA-Public Use
  Company Number: FR-ABBOTT-09P-056-0498072-00

PATIENT
  Sex: Female

DRUGS (2)
  1. KALETRA [Suspect]
     Indication: HIV INFECTION
     Route: 048
     Dates: start: 20061111
  2. ABACAVIR SULFATE W/LAMIVUDINE/ZIDOVUDINE [Suspect]
     Indication: HIV INFECTION
     Dates: start: 20050504

REACTIONS (4)
  - DRUG EXPOSURE DURING PREGNANCY [None]
  - INFLAMMATION [None]
  - INTRA-UTERINE DEATH [None]
  - PLACENTAL DISORDER [None]
